FAERS Safety Report 14376246 (Version 1)
Quarter: 2018Q1

REPORT INFORMATION
  Report Type: Report from Study
  Country: IT (occurrence: IT)
  Receive Date: 20180111
  Receipt Date: 20180111
  Transmission Date: 20180509
  Serious: Yes (Hospitalization)
  Sender: FDA-Public Use
  Company Number: IT-JNJFOC-20180111077

PATIENT
  Age: 67 Year
  Sex: Male

DRUGS (5)
  1. XARELTO [Suspect]
     Active Substance: RIVAROXABAN
     Indication: PRODUCT USED FOR UNKNOWN INDICATION
     Route: 048
  2. CLOFIBRATE [Concomitant]
     Active Substance: CLOFIBRATE
     Route: 048
  3. COMBISARTAN [Concomitant]
     Active Substance: HYDROCHLOROTHIAZIDE\VALSARTAN
     Dosage: 80MG/12.5 MG
     Route: 048
  4. CARTEOLOL [Concomitant]
     Active Substance: CARTEOLOL
     Route: 047
  5. SOTALOL. [Concomitant]
     Active Substance: SOTALOL
     Route: 048

REACTIONS (2)
  - Diarrhoea [Unknown]
  - Presyncope [Unknown]

NARRATIVE: CASE EVENT DATE: 20170310
